FAERS Safety Report 6101038-9 (Version None)
Quarter: 2009Q1

REPORT INFORMATION
  Report Type: 
  Country: None (occurrence: None)
  Receive Date: 20090225
  Receipt Date: 20090217
  Transmission Date: 20090719
  Serious: Yes (Other)
  Sender: FDA-Public Use
  Company Number: CHPA2008US25314

PATIENT
  Age: 3 Year
  Sex: Male
  Weight: 12.7 kg

DRUGS (1)
  1. EX-LAX REG STR CHOCOLATED LAX PCS SEN (NCH)(SENNA GLYCOSIDES (CA SALTS [Suspect]
     Indication: INCORRECT DOSE ADMINISTERED
     Dosage: 360 MG, ONCE SINGLE, ORAL
     Route: 048
     Dates: start: 20081215, end: 20081215

REACTIONS (4)
  - ABDOMINAL PAIN UPPER [None]
  - ACCIDENTAL DRUG INTAKE BY CHILD [None]
  - ACCIDENTAL OVERDOSE [None]
  - DIARRHOEA [None]
